FAERS Safety Report 19888405 (Version 1)
Quarter: 2021Q3

REPORT INFORMATION
  Report Type: Spontaneous
  Country: US (occurrence: US)
  Receive Date: 20210927
  Receipt Date: 20210927
  Transmission Date: 20211014
  Serious: Yes (Life-Threatening, Disabling, Other)
  Sender: FDA-Public Use
  Company Number: None

PATIENT
  Sex: Female

DRUGS (1)
  1. CITALOPRAM [Suspect]
     Active Substance: CITALOPRAM HYDROBROMIDE
     Dates: start: 20210819, end: 20210916

REACTIONS (25)
  - Gastrointestinal infection [None]
  - Bruxism [None]
  - Feeling abnormal [None]
  - Musculoskeletal stiffness [None]
  - Palpitations [None]
  - Fear [None]
  - Headache [None]
  - Vomiting [None]
  - Crying [None]
  - Decreased appetite [None]
  - Chest discomfort [None]
  - Chest pain [None]
  - Mania [None]
  - Hyperhidrosis [None]
  - Blood pressure increased [None]
  - Anxiety [None]
  - Energy increased [None]
  - Impaired work ability [None]
  - Confusional state [None]
  - Fatigue [None]
  - Product substitution issue [None]
  - Chills [None]
  - Nausea [None]
  - Disturbance in attention [None]
  - Serotonin syndrome [None]

NARRATIVE: CASE EVENT DATE: 20210916
